FAERS Safety Report 10192260 (Version 1)
Quarter: 2014Q2

REPORT INFORMATION
  Report Type: Spontaneous
  Country: US (occurrence: US)
  Receive Date: 20140523
  Receipt Date: 20140523
  Transmission Date: 20141212
  Serious: Yes (Life-Threatening, Hospitalization)
  Sender: FDA-Public Use
  Company Number: US-JNJFOC-20140513215

PATIENT
  Age: 44 Year
  Sex: Female

DRUGS (2)
  1. RIVAROXABAN [Suspect]
     Indication: DEEP VEIN THROMBOSIS
     Route: 048
  2. RIVAROXABAN [Suspect]
     Indication: PULMONARY EMBOLISM
     Route: 048

REACTIONS (3)
  - Antiphospholipid syndrome [Recovered/Resolved with Sequelae]
  - Drug withdrawal syndrome [Recovered/Resolved with Sequelae]
  - Myocardial necrosis [Recovered/Resolved with Sequelae]
